FAERS Safety Report 5310173-4 (Version None)
Quarter: 2007Q2

REPORT INFORMATION
  Report Type: 
  Country: None (occurrence: None)
  Receive Date: 20070427
  Receipt Date: 20070417
  Transmission Date: 20071010
  Serious: Yes (Other)
  Sender: FDA-Public Use
  Company Number: JP-ELI_LILLY_AND_COMPANY-JP200704001367

PATIENT
  Age: 72 Year
  Sex: Female
  Weight: 55 kg

DRUGS (9)
  1. EVISTA [Suspect]
     Indication: OSTEOPOROSIS
     Dosage: 60 MG, QOD
     Route: 048
     Dates: start: 20050510, end: 20070319
  2. NORVASC [Concomitant]
     Indication: HYPERTENSION
     Dosage: 2.5 MG, DAILY (1/D)
     Route: 048
  3. ALMARL [Concomitant]
     Indication: HYPERTENSION
     Dosage: 10 MG, DAILY (1/D)
     Route: 048
     Dates: end: 20070319
  4. SPIRONOLACTONE [Concomitant]
     Indication: OEDEMA
     Dosage: 25 MG, DAILY (1/D)
     Route: 048
     Dates: end: 20070417
  5. ALLOPURINOL [Concomitant]
     Indication: HYPERURICAEMIA
     Dosage: 200 MG, DAILY (1/D)
     Route: 048
  6. KALLIDINOGENASE [Concomitant]
     Dosage: 50 IU, 2/D
     Route: 048
  7. D ALFA [Concomitant]
     Indication: OSTEOPOROSIS
     Dosage: 2 UG, DAILY (1/D)
     Route: 048
  8. PRAVASTAN [Concomitant]
     Indication: HYPERLIPIDAEMIA
     Dosage: 5 MG, DAILY (1/D)
     Route: 048
  9. BLOPRESS [Concomitant]
     Indication: HYPERTENSION
     Dosage: 4 MG, DAILY (1/D)
     Route: 048

REACTIONS (1)
  - ANTI-NEUTROPHIL CYTOPLASMIC ANTIBODY POSITIVE VASCULITIS [None]
